FAERS Safety Report 8994588 (Version 1)
Quarter: 2012Q4

REPORT INFORMATION
  Report Type: Spontaneous
  Country: US (occurrence: None)
  Receive Date: 20121228
  Receipt Date: 20121228
  Transmission Date: 20130627
  Serious: Yes (Hospitalization)
  Sender: FDA-Public Use
  Company Number: None

PATIENT
  Sex: Male
  Weight: 104.78 kg

DRUGS (6)
  1. RIBAVIRIN [Suspect]
     Indication: HEPATITIS C
     Dosage: 600mg bid po
     Route: 048
     Dates: start: 20120810, end: 20121226
  2. PEG-INTRON [Concomitant]
  3. CETIRIZINE [Concomitant]
  4. HYDROCOD/APAP [Concomitant]
  5. ESCITALOPRAM [Concomitant]
  6. INCIVEK [Concomitant]

REACTIONS (3)
  - Rash [None]
  - Dyspnoea exertional [None]
  - Impaired work ability [None]
